FAERS Safety Report 5286365-X (Version None)
Quarter: 2007Q1

REPORT INFORMATION
  Report Type: 
  Country: None (occurrence: None)
  Receive Date: 20070329
  Receipt Date: 20070314
  Transmission Date: 20070707
  Serious: Yes (Death)
  Sender: FDA-Public Use
  Company Number: 2007BM000032

PATIENT
  Sex: Male

DRUGS (2)
  1. PREDNISOLONE [Suspect]
     Indication: SYSTEMIC LUPUS ERYTHEMATOSUS
     Dosage: 5.0 MG/KG; QD;
  2. ORAPRED [Suspect]

REACTIONS (2)
  - FUNGAEMIA [None]
  - MENINGITIS CRYPTOCOCCAL [None]
